FAERS Safety Report 5690569-1 (Version None)
Quarter: 2008Q2

REPORT INFORMATION
  Report Type: 
  Country: None (occurrence: None)
  Receive Date: 20080401
  Receipt Date: 19871102
  Transmission Date: 20081010
  Serious: Yes (Death, Congenital Anomaly, Other)
  Sender: FDA-Public Use
  Company Number: US-ROCHE-870201564001

PATIENT

DRUGS (1)
  1. ACCUTANE [Suspect]
     Indication: DRUG USE FOR UNKNOWN INDICATION
     Dates: end: 19850831

REACTIONS (14)
  - ATRIAL SEPTAL DEFECT [None]
  - CONGENITAL CENTRAL NERVOUS SYSTEM ANOMALY [None]
  - CONGENITAL HYDROCEPHALUS [None]
  - CONGENITAL NOSE MALFORMATION [None]
  - DEATH [None]
  - DYSMORPHISM [None]
  - EAR MALFORMATION [None]
  - EYELID PTOSIS [None]
  - HIGH ARCHED PALATE [None]
  - HYPERREFLEXIA [None]
  - HYPOTONIA [None]
  - PUPILLARY REFLEX IMPAIRED [None]
  - SKULL MALFORMATION [None]
  - VENTRICULAR SEPTAL DEFECT [None]
